FAERS Safety Report 8336457-3 (Version None)
Quarter: 2012Q2

REPORT INFORMATION
  Report Type: 
  Country: None (occurrence: None)
  Receive Date: 20120504
  Receipt Date: 20120430
  Transmission Date: 20120825
  Serious: Yes (Other)
  Sender: FDA-Public Use
  Company Number: US-PFIZER INC-2012106543

PATIENT
  Sex: Male
  Weight: 79.4 kg

DRUGS (4)
  1. LYRICA [Suspect]
     Indication: PROCEDURAL PAIN
     Dosage: UNK
     Route: 048
     Dates: start: 20100401
  2. LYRICA [Suspect]
     Indication: TUMOUR PAIN
     Dosage: UNK, DAILY
     Route: 048
     Dates: start: 20120101
  3. VICODIN [Concomitant]
     Indication: PAIN
     Dosage: UNK
  4. ACIPHEX [Concomitant]
     Indication: GASTROOESOPHAGEAL REFLUX DISEASE
     Dosage: UNK

REACTIONS (3)
  - DIZZINESS [None]
  - ABNORMAL DREAMS [None]
  - PALPITATIONS [None]
